FAERS Safety Report 17485542 (Version 3)
Quarter: 2020Q2

REPORT INFORMATION
  Report Type: Report from Study
  Country: US (occurrence: US)
  Receive Date: 20200302
  Receipt Date: 20200401
  Transmission Date: 20200713
  Serious: No
  Sender: FDA-Public Use
  Company Number: US-SA-2020SA053115

PATIENT
  Age: 53 Year
  Sex: Female

DRUGS (11)
  1. BENADRYL [Concomitant]
     Active Substance: DIPHENHYDRAMINE HYDROCHLORIDE
  2. BETAMETHASONE DIPROPIONATE. [Concomitant]
     Active Substance: BETAMETHASONE DIPROPIONATE
  3. FLUTICASONE PROPIONATE. [Concomitant]
     Active Substance: FLUTICASONE PROPIONATE
  4. DUPILUMAB [Suspect]
     Active Substance: DUPILUMAB
     Indication: DERMATITIS ATOPIC
     Dosage: 300 MG, QOW
     Route: 058
     Dates: start: 20200214
  5. DESONIDE. [Concomitant]
     Active Substance: DESONIDE
  6. DUPILUMAB [Suspect]
     Active Substance: DUPILUMAB
     Indication: DERMATITIS ALLERGIC
     Dosage: 600 MG, 1X
     Route: 058
  7. ATIVAN [Concomitant]
     Active Substance: LORAZEPAM
  8. ACYCLOVIR [ACICLOVIR] [Concomitant]
     Active Substance: ACYCLOVIR
  9. FLUOCINONIDE. [Concomitant]
     Active Substance: FLUOCINONIDE
  10. NAPROXEN. [Concomitant]
     Active Substance: NAPROXEN
  11. TYLENOL [Concomitant]
     Active Substance: ACETAMINOPHEN

REACTIONS (5)
  - Ocular hyperaemia [Recovered/Resolved]
  - Peripheral swelling [Unknown]
  - Herpes virus infection [Unknown]
  - Oral herpes [Recovered/Resolved]
  - Rash macular [Unknown]
